FAERS Safety Report 5300857-6 (Version None)
Quarter: 2007Q1

REPORT INFORMATION
  Report Type: 
  Country: None (occurrence: None)
  Receive Date: 20070201
  Receipt Date: 20061009
  Transmission Date: 20070707
  Serious: No
  Sender: FDA-Public Use
  Company Number: 2006PV022836

PATIENT
  Age: 66 Year
  Sex: Female
  Weight: 78.4723 kg

DRUGS (5)
  1. BYETTA [Suspect]
     Indication: DIABETES MELLITUS NON-INSULIN-DEPENDENT
     Dosage: SEE IMAGE
     Route: 058
     Dates: end: 20060101
  2. GLUCOPHAGE [Concomitant]
  3. CARDIZEM CD [Concomitant]
  4. ACCUPRIL [Concomitant]
  5. CARDURA [Concomitant]

REACTIONS (10)
  - ASTHENIA [None]
  - BLOOD GLUCOSE INCREASED [None]
  - BRONCHITIS [None]
  - COUGH [None]
  - FALL [None]
  - HYPOTENSION [None]
  - LOSS OF CONTROL OF LEGS [None]
  - PNEUMONIA [None]
  - WEIGHT DECREASED [None]
  - WHEEZING [None]
